FAERS Safety Report 6278325-7 (Version None)
Quarter: 2009Q3

REPORT INFORMATION
  Report Type: 
  Country: None (occurrence: None)
  Receive Date: 20090720
  Receipt Date: 20090720
  Transmission Date: 20100115
  Serious: Yes (Other)
  Sender: FDA-Public Use
  Company Number: None

PATIENT
  Sex: Female
  Weight: 81.6475 kg

DRUGS (1)
  1. LEVAQUIN [Suspect]
     Indication: SINUSITIS
     Dosage: 500 MG DAILY
     Dates: start: 20090327, end: 20090405

REACTIONS (6)
  - AMNESIA [None]
  - ARTHRALGIA [None]
  - ASTHENIA [None]
  - HALLUCINATION [None]
  - INSOMNIA [None]
  - MYALGIA [None]
